FAERS Safety Report 16956232 (Version 1)
Quarter: 2019Q4

REPORT INFORMATION
  Report Type: Spontaneous
  Country: US (occurrence: US)
  Receive Date: 20190905
  Receipt Date: 20190905
  Transmission Date: 20200122
  Serious: No
  Sender: FDA-Public Use
  Company Number: None

PATIENT
  Age: 48 Year
  Sex: Female
  Weight: 78.47 kg

DRUGS (21)
  1. NALTREXONE HCL 4.5MG CAPSULE [Suspect]
     Active Substance: NALTREXONE HYDROCHLORIDE
     Indication: PAIN MANAGEMENT
     Dosage: ?          QUANTITY:4.5 MG MILLIGRAM(S);?
     Route: 048
     Dates: start: 20190810, end: 20190811
  2. ZANAFLEX [Concomitant]
     Active Substance: TIZANIDINE HYDROCHLORIDE
  3. LYRICA [Concomitant]
     Active Substance: PREGABALIN
  4. MOBIC [Concomitant]
     Active Substance: MELOXICAM
  5. ESTROGEN [Concomitant]
     Active Substance: ESTROGENS
  6. BIOTIN [Concomitant]
     Active Substance: BIOTIN
  7. OMEGA 3 [Concomitant]
     Active Substance: OMEGA-3 FATTY ACIDS
  8. ADDERALL [Concomitant]
     Active Substance: AMPHETAMINE ASPARTATE\AMPHETAMINE SULFATE\DEXTROAMPHETAMINE SACCHARATE\DEXTROAMPHETAMINE SULFATE
  9. BOSTON SCIENTIFIC SPINAL CORD STIMULATOR [Concomitant]
  10. NORCO [Concomitant]
     Active Substance: ACETAMINOPHEN\HYDROCODONE BITARTRATE
  11. LISINOPRIL. [Concomitant]
     Active Substance: LISINOPRIL
  12. VITAMIN B12 [Concomitant]
     Active Substance: CYANOCOBALAMIN
  13. L-ARGININE [Concomitant]
     Active Substance: ARGININE
  14. BELBUCCA SUB-LINGUAL [Concomitant]
  15. TESTOSTERONE INJECTIONS [Concomitant]
     Active Substance: TESTOSTERONE
  16. HCTZ [Concomitant]
     Active Substance: HYDROCHLOROTHIAZIDE
  17. VIT D [Concomitant]
     Active Substance: VITAMIN D NOS
  18. CYMBALTA [Concomitant]
     Active Substance: DULOXETINE HYDROCHLORIDE
  19. VYVANSE [Concomitant]
     Active Substance: LISDEXAMFETAMINE DIMESYLATE
  20. CRESTOR [Concomitant]
     Active Substance: ROSUVASTATIN CALCIUM
  21. CARDIZEM [Concomitant]
     Active Substance: DILTIAZEM HYDROCHLORIDE

REACTIONS (4)
  - Somnolence [None]
  - Yawning [None]
  - Restless legs syndrome [None]
  - Discomfort [None]

NARRATIVE: CASE EVENT DATE: 20190810
